FAERS Safety Report 9445394 (Version 1)
Quarter: 2013Q3

REPORT INFORMATION
  Report Type: Spontaneous
  Country: FR (occurrence: FR)
  Receive Date: 20130807
  Receipt Date: 20130807
  Transmission Date: 20140515
  Serious: Yes (Other)
  Sender: FDA-Public Use
  Company Number: FR-ROXANE LABORATORIES, INC.-2013-RO-01303RO

PATIENT
  Age: 35 Year
  Sex: Male
  Weight: 120 kg

DRUGS (4)
  1. RISPERIDONE [Suspect]
     Indication: SCHIZOPHRENIA, PARANOID TYPE
     Dosage: 18 MG
  2. RISPERIDONE [Suspect]
     Dosage: 12 MG
  3. RISPERIDONE [Suspect]
     Dosage: 12 MG
  4. CLOZAPINE [Suspect]
     Indication: SCHIZOPHRENIA, PARANOID TYPE
     Dates: start: 20110310

REACTIONS (2)
  - Neutropenia [Recovered/Resolved]
  - Drug resistance [Unknown]
